FAERS Safety Report 18938139 (Version 7)
Quarter: 2021Q4

REPORT INFORMATION
  Report Type: Report from Study
  Country: KR (occurrence: KR)
  Receive Date: 20210224
  Receipt Date: 20211116
  Transmission Date: 20220303
  Serious: Yes (Hospitalization, Other)
  Sender: FDA-Public Use
  Company Number: KR-TAKEDA-2021TUS010463

PATIENT
  Age: 66 Year
  Sex: Male
  Weight: 62.8 kg

DRUGS (11)
  1. BRIGATINIB [Suspect]
     Active Substance: BRIGATINIB
     Indication: Non-small cell lung cancer
     Dosage: 90 MILLIGRAM, QD
     Route: 048
     Dates: start: 20210208, end: 20210214
  2. BRIGATINIB [Suspect]
     Active Substance: BRIGATINIB
     Dosage: 90 MILLIGRAM, QD
     Route: 048
     Dates: start: 20210218, end: 20210219
  3. BRIGATINIB [Suspect]
     Active Substance: BRIGATINIB
     Dosage: 180 MILLIGRAM, QD
     Route: 048
     Dates: start: 20210220, end: 20210306
  4. Tramarol semi er [Concomitant]
     Indication: Cancer pain
     Dosage: UNK
     Route: 048
     Dates: start: 20210118, end: 20210123
  5. Tramarol semi er [Concomitant]
     Dosage: UNK
     Route: 048
     Dates: start: 20210224
  6. FENTANYL [Concomitant]
     Active Substance: FENTANYL
     Indication: Cancer pain
     Dosage: 25 MICROGRAM
     Route: 062
     Dates: start: 20210127, end: 20210217
  7. HARNAL [Concomitant]
     Active Substance: TAMSULOSIN HYDROCHLORIDE
     Indication: Benign prostatic hyperplasia
     Dosage: 0.4 MILLIGRAM
     Route: 048
     Dates: start: 20210116, end: 20210301
  8. ILYANG BIO ACETYLCYSTEINE [Concomitant]
     Indication: Benign prostatic hyperplasia
     Dosage: 2 MILLIGRAM
     Route: 048
     Dates: start: 20210116, end: 20210301
  9. BANAN [Concomitant]
     Active Substance: CEFPODOXIME PROXETIL
     Indication: Respiratory disorder prophylaxis
     Dosage: 200 MILLIGRAM
     Route: 048
     Dates: start: 20210201, end: 20210216
  10. BANAN [Concomitant]
     Active Substance: CEFPODOXIME PROXETIL
     Dosage: 200 MILLIGRAM
     Route: 048
     Dates: start: 20210215, end: 20210216
  11. MYUNGIN TRAZODONE [Concomitant]
     Indication: Depression
     Dosage: 10 MILLIGRAM
     Route: 048
     Dates: start: 20210110

REACTIONS (12)
  - Hypercalcaemia [Recovering/Resolving]
  - Chest pain [Recovered/Resolved]
  - Pneumonia [Not Recovered/Not Resolved]
  - Hypokalaemia [Recovered/Resolved]
  - Leukocytosis [Recovering/Resolving]
  - Fatigue [Not Recovered/Not Resolved]
  - Haemoptysis [Recovered/Resolved]
  - Urine output decreased [Not Recovered/Not Resolved]
  - Constipation [Not Recovered/Not Resolved]
  - Decreased appetite [Not Recovered/Not Resolved]
  - Hypertension [Not Recovered/Not Resolved]
  - Pyrexia [Recovered/Resolved]

NARRATIVE: CASE EVENT DATE: 20210213
